FAERS Safety Report 10409618 (Version 1)
Quarter: 2014Q3

REPORT INFORMATION
  Report Type: Spontaneous
  Country: US (occurrence: None)
  Receive Date: 20140825
  Receipt Date: 20140825
  Transmission Date: 20150326
  Serious: No
  Sender: FDA-Public Use
  Company Number: None

PATIENT
  Age: 51 Year
  Sex: Female
  Weight: 65.77 kg

DRUGS (1)
  1. RESTASIS [Suspect]
     Active Substance: CYCLOSPORINE
     Indication: DRY EYE
     Dosage: 1 DROP EACH EYE TWICE DAILY INTO THE EYE
     Dates: start: 20140819, end: 20140821

REACTIONS (7)
  - Ocular hyperaemia [None]
  - Eyelid disorder [None]
  - Lacrimation increased [None]
  - Vision blurred [None]
  - Eye pain [None]
  - Eye pruritus [None]
  - Eye discharge [None]

NARRATIVE: CASE EVENT DATE: 20140821
